FAERS Safety Report 9261069 (Version 1)
Quarter: 2013Q2

REPORT INFORMATION
  Report Type: Spontaneous
  Country: US (occurrence: US)
  Receive Date: 20130429
  Receipt Date: 20130429
  Transmission Date: 20140414
  Serious: No
  Sender: FDA-Public Use
  Company Number: US-AMGEN-USASP2012056939

PATIENT
  Age: 46 Year
  Sex: Female

DRUGS (4)
  1. SENSIPAR [Suspect]
     Indication: HYPERPARATHYROIDISM SECONDARY
     Dosage: 90 MG, QD
  2. SENSIPAR [Suspect]
     Dosage: 60 MG, QD
  3. SENSIPAR [Suspect]
     Dosage: 60 MG, QD
  4. SENSIPAR [Suspect]
     Dosage: 30 MG, QD

REACTIONS (1)
  - Diarrhoea [Not Recovered/Not Resolved]
